FAERS Safety Report 5189212-X (Version None)
Quarter: 2006Q4

REPORT INFORMATION
  Report Type: 
  Country: None (occurrence: None)
  Receive Date: 20061215
  Receipt Date: 20061204
  Transmission Date: 20070319
  Serious: No
  Sender: FDA-Public Use
  Company Number: 2006120006

PATIENT
  Age: 56 Year
  Sex: Female
  Weight: 32 kg

DRUGS (1)
  1. PENICILLAMINE [Suspect]
     Indication: RHEUMATOID ARTHRITIS
     Dosage: 600 MG/DAY; ORAL
     Route: 048

REACTIONS (3)
  - BLOOD IMMUNOGLOBULIN A DECREASED [None]
  - COLITIS ULCERATIVE [None]
  - RECTAL ULCER [None]
